FAERS Safety Report 5501660-4 (Version None)
Quarter: 2007Q4

REPORT INFORMATION
  Report Type: 
  Country: None (occurrence: None)
  Receive Date: 20071022
  Receipt Date: 20070725
  Transmission Date: 20080405
  Serious: No
  Sender: FDA-Public Use
  Company Number: SPV1-2007-03685

PATIENT
  Age: 16 Year
  Sex: Female
  Weight: 72.6 kg

DRUGS (4)
  1. VYVANSE [Suspect]
     Indication: ATTENTION DEFICIT/HYPERACTIVITY DISORDER
     Dosage: 30 MG, 1X/DAY;QD; ORAL
     Route: 048
     Dates: start: 20070715
  2. ABILIFY (ARIPIPRAZOLE) TABLET [Concomitant]
  3. LAMICTAL [Concomitant]
  4. FLUOXETINE [Concomitant]

REACTIONS (2)
  - OFF LABEL USE [None]
  - RASH ERYTHEMATOUS [None]
